FAERS Safety Report 8016213-6 (Version None)
Quarter: 2011Q4

REPORT INFORMATION
  Report Type: 
  Country: None (occurrence: None)
  Receive Date: 20111227
  Receipt Date: 20111216
  Transmission Date: 20120403
  Serious: Yes (Hospitalization)
  Sender: FDA-Public Use
  Company Number: US-GDP-11412632

PATIENT
  Sex: Female
  Weight: 97 kg

DRUGS (7)
  1. COLECALCIFEROL [Concomitant]
  2. ASCORBIC ACID [Concomitant]
  3. ORLISTAT [Concomitant]
  4. CELEXA [Concomitant]
  5. CALCIUM ACETATE [Concomitant]
  6. ORACEA [Suspect]
     Indication: ROSACEA
     Dosage: (40 MG QD ORAL)
     Route: 048
     Dates: start: 20111118, end: 20111205
  7. METROGEL [Suspect]
     Indication: ROSACEA
     Dosage: (1 DF QD TOPICAL)
     Route: 061
     Dates: start: 20111118, end: 20111205

REACTIONS (1)
  - DIVERTICULITIS [None]
